FAERS Safety Report 5893652-0 (Version None)
Quarter: 2008Q3

REPORT INFORMATION
  Report Type: 
  Country: None (occurrence: None)
  Receive Date: 20080923
  Receipt Date: 20071002
  Transmission Date: 20090109
  Serious: No
  Sender: FDA-Public Use
  Company Number: US-ASTRAZENECA-2007UW22990

PATIENT
  Sex: Male

DRUGS (1)
  1. SEROQUEL [Suspect]
     Indication: FLIGHT OF IDEAS
     Route: 048
     Dates: start: 20070901

REACTIONS (6)
  - AGITATION [None]
  - BRUXISM [None]
  - COLD SWEAT [None]
  - HYPERHIDROSIS [None]
  - INSOMNIA [None]
  - WITHDRAWAL SYNDROME [None]
